FAERS Safety Report 5506437-1 (Version None)
Quarter: 2007Q4

REPORT INFORMATION
  Report Type: 
  Country: None (occurrence: None)
  Receive Date: 20071105
  Receipt Date: 20071018
  Transmission Date: 20080405
  Serious: Yes (Other)
  Sender: FDA-Public Use
  Company Number: ES-BAYER-200716209GDS

PATIENT
  Age: 61 Year
  Sex: Male

DRUGS (7)
  1. ADIRO [Suspect]
     Indication: DRUG USE FOR UNKNOWN INDICATION
     Dosage: TOTAL DAILY DOSE: 100 MG  UNIT DOSE: 100 MG
     Route: 048
     Dates: start: 20070909, end: 20070910
  2. REOPRO [Suspect]
     Indication: CORONARY ANGIOPLASTY
     Route: 042
     Dates: start: 20070910
  3. CLEXANE [Suspect]
     Indication: DRUG USE FOR UNKNOWN INDICATION
     Dosage: TOTAL DAILY DOSE: 40 MG  UNIT DOSE: 40 MG
     Route: 058
     Dates: start: 20070910
  4. PLAVIX [Suspect]
     Indication: DRUG USE FOR UNKNOWN INDICATION
     Dosage: TOTAL DAILY DOSE: 75 MG  UNIT DOSE: 75 MG
     Route: 048
     Dates: start: 20070910
  5. VALS [Concomitant]
     Indication: HYPERTENSION
     Dosage: UNIT DOSE: 80 MG
     Route: 048
  6. HIDROSALURETIL [Concomitant]
     Indication: HYPERTENSION
     Route: 048
  7. CARDYL [Concomitant]
     Indication: HYPERCHOLESTEROLAEMIA
     Dosage: UNIT DOSE: 10 MG
     Route: 048

REACTIONS (2)
  - PUNCTURE SITE HAEMORRHAGE [None]
  - THROMBOCYTOPENIA [None]
